FAERS Safety Report 12606486 (Version 1)
Quarter: 2016Q3

REPORT INFORMATION
  Report Type: Spontaneous
  Country: US (occurrence: None)
  Receive Date: 20160728
  Receipt Date: 20160728
  Transmission Date: 20161109
  Serious: Yes (Hospitalization)
  Sender: FDA-Public Use
  Company Number: None

PATIENT
  Age: 29 Year
  Sex: Male
  Weight: 65 kg

DRUGS (1)
  1. REGORAFENIB [Suspect]
     Active Substance: REGORAFENIB
     Indication: COLORECTAL CANCER METASTATIC
     Dates: start: 20160624, end: 20160715

REACTIONS (4)
  - Hepatic enzyme increased [None]
  - Inappropriate schedule of drug administration [None]
  - Obstruction [None]
  - Mass [None]

NARRATIVE: CASE EVENT DATE: 20160722
